FAERS Safety Report 12936746 (Version 1)
Quarter: 2016Q4

REPORT INFORMATION
  Report Type: Spontaneous
  Country: US (occurrence: US)
  Receive Date: 20161114
  Receipt Date: 20161114
  Transmission Date: 20170207
  Serious: No
  Sender: FDA-Public Use
  Company Number: US-ASTRAZENECA-2016SF16139

PATIENT
  Age: 82 Year
  Sex: Female
  Weight: 54.4 kg

DRUGS (3)
  1. TOPROL XL [Suspect]
     Active Substance: METOPROLOL SUCCINATE
     Indication: SINUS TACHYCARDIA
     Dosage: 25 MG A DAY CUT INTO FOUR PIECES AND TOOK EVERY 6HRS
     Route: 048
     Dates: start: 2016, end: 20161003
  2. TIKOSYN [Suspect]
     Active Substance: DOFETILIDE
     Dates: start: 20161003
  3. LOPRESSOR [Suspect]
     Active Substance: METOPROLOL TARTRATE
     Indication: SINUS TACHYCARDIA
     Dosage: 25 MG A DAY CUT INTO FOUR PIECES AND TOOK EVERY 6HRS
     Route: 048
     Dates: start: 2016, end: 20161003

REACTIONS (6)
  - Drug ineffective [Unknown]
  - Malaise [Unknown]
  - Insomnia [Unknown]
  - Feeding disorder [Unknown]
  - Weight decreased [Unknown]
  - Palpitations [Recovering/Resolving]

NARRATIVE: CASE EVENT DATE: 2016
